FAERS Safety Report 9982471 (Version 1)
Quarter: 2014Q1

REPORT INFORMATION
  Report Type: Spontaneous
  Country: US (occurrence: None)
  Receive Date: 20140306
  Receipt Date: 20140306
  Transmission Date: 20141002
  Serious: Yes (Hospitalization)
  Sender: FDA-Public Use
  Company Number: None

PATIENT
  Age: 93 Year
  Sex: Male

DRUGS (12)
  1. FORTEO 600MCG PEN PFIZER [Suspect]
     Dosage: 20MCG, QD, SQ
     Route: 058
     Dates: start: 20140106
  2. ALLOPURINOL [Concomitant]
  3. ASPIRIN [Concomitant]
  4. SYMBICORT [Concomitant]
  5. CENTRUM [Concomitant]
  6. WARFARIN [Concomitant]
  7. LASIX [Concomitant]
  8. METOPROLOL [Concomitant]
  9. NORVASC [Concomitant]
  10. PRILOSEC [Concomitant]
  11. ZOCOR [Concomitant]
  12. TRAMADOL [Concomitant]

REACTIONS (1)
  - Pneumonia [None]
